FAERS Safety Report 6766718-0 (Version None)
Quarter: 2010Q2

REPORT INFORMATION
  Report Type: 
  Country: None (occurrence: None)
  Receive Date: 20100611
  Receipt Date: 20100601
  Transmission Date: 20101027
  Serious: Yes (Hospitalization)
  Sender: FDA-Public Use
  Company Number: ES-PERRIGO-10ES010127

PATIENT
  Age: 22 Year
  Sex: Male

DRUGS (1)
  1. MESALAMINE [Suspect]
     Indication: COLITIS ULCERATIVE
     Dosage: 3 G, QD
     Route: 065

REACTIONS (1)
  - MYOPERICARDITIS [None]
